FAERS Safety Report 20981304 (Version 2)
Quarter: 2022Q2

REPORT INFORMATION
  Report Type: Spontaneous
  Country: US (occurrence: US)
  Receive Date: 20220620
  Receipt Date: 20220620
  Transmission Date: 20220720
  Serious: No
  Sender: FDA-Public Use
  Company Number: US-ASTELLAS-2021US029856

PATIENT
  Age: 88 Year
  Sex: Female

DRUGS (4)
  1. VESICARE [Suspect]
     Active Substance: SOLIFENACIN SUCCINATE
     Indication: Prophylaxis urinary tract infection
     Dosage: 5 MG, ONCE DAILY (STARTED ABOUT 7 YEARS AGO BEFORE 2016)
     Route: 048
     Dates: end: 201907
  2. VESICARE [Suspect]
     Active Substance: SOLIFENACIN SUCCINATE
     Route: 048
     Dates: start: 202103
  3. SOLIFENACIN [Suspect]
     Active Substance: SOLIFENACIN
     Indication: Prophylaxis urinary tract infection
     Route: 065
     Dates: start: 201907, end: 202002
  4. ESTRACE [Concomitant]
     Active Substance: ESTRADIOL
     Indication: Urinary tract infection
     Dosage: UNK UNK, UNKNOWN FREQ.
     Route: 065

REACTIONS (2)
  - Product use in unapproved indication [Not Recovered/Not Resolved]
  - Drug ineffective for unapproved indication [Recovered/Resolved]
